FAERS Safety Report 9262601 (Version 2)
Quarter: 2013Q2

REPORT INFORMATION
  Report Type: Report from Study
  Country: AU (occurrence: AU)
  Receive Date: 20130430
  Receipt Date: 20130516
  Transmission Date: 20140414
  Serious: Yes (Hospitalization, Other)
  Sender: FDA-Public Use
  Company Number: AU-VERTEX PHARMACEUTICALS INC.-2013-000001

PATIENT
  Age: 11 Year
  Sex: Male
  Weight: 33.8 kg

DRUGS (70)
  1. VX-770 [Suspect]
     Indication: CYSTIC FIBROSIS
     Dosage: 150 MG, UNK
     Route: 048
     Dates: start: 20110407, end: 20130120
  2. LOSEC [Concomitant]
     Indication: GASTROOESOPHAGEAL REFLUX DISEASE
     Dosage: 20 MG, QD
     Route: 048
     Dates: start: 20110407, end: 20110428
  3. ZOVIRAX [Concomitant]
     Indication: ORAL HERPES
     Dosage: 1 SMEAR, PRN
     Route: 061
     Dates: start: 20110616, end: 20110619
  4. PREDNISONE [Concomitant]
     Indication: EOSINOPHILIA
     Dosage: 25 MG, UNK
     Route: 048
     Dates: start: 20110617, end: 20110620
  5. PREDNISONE [Concomitant]
     Indication: BRONCHOPULMONARY ASPERGILLOSIS ALLERGIC
     Dosage: 37.5 MG, UNK
     Route: 048
     Dates: start: 20120621, end: 20120623
  6. PREDNISONE [Concomitant]
     Dosage: 37.5 UNK, UNK
     Route: 048
     Dates: start: 20130103, end: 20130121
  7. PREDNISONE [Concomitant]
     Dosage: 25 UNK, UNK
     Route: 048
     Dates: start: 20130122, end: 20130124
  8. PREDNISONE [Concomitant]
     Dosage: 12.5 UNK, UNK
     Route: 048
     Dates: start: 20130125, end: 20130130
  9. PREDNISONE [Concomitant]
     Dosage: 5 UNK, UNK
     Route: 048
     Dates: start: 20130131, end: 20130204
  10. IRON SULFATE [Concomitant]
     Indication: IRON DEFICIENCY
     Dosage: 325 MG, UNK
     Route: 048
     Dates: start: 20110708, end: 20110828
  11. CURAM [Concomitant]
     Indication: INFECTIVE PULMONARY EXACERBATION OF CYSTIC FIBROSIS
     Dosage: UNK
     Route: 048
     Dates: start: 20110609, end: 20110622
  12. CURAM [Concomitant]
     Dosage: UNK
     Route: 048
     Dates: start: 20110701, end: 20110707
  13. CURAM [Concomitant]
     Dosage: 500/125 MG
     Route: 048
     Dates: start: 20110730, end: 20110801
  14. GLUCOLYTE                          /00082702/ [Concomitant]
     Indication: MEDICAL DIET
     Dosage: 1 SACHET
     Dates: start: 20010607, end: 20120302
  15. GLUCOLYTE                          /00082702/ [Concomitant]
     Dosage: 1 TO 2 SACHETS DAILY
     Dates: start: 20120303
  16. PULMOZYME [Concomitant]
     Indication: CYSTIC FIBROSIS LUNG
     Dosage: 2.5 MG, UNK
     Dates: start: 20070604, end: 20120209
  17. PULMOZYME [Concomitant]
     Dosage: 2.5 UNK, UNK
     Dates: start: 20120210
  18. CREON [Concomitant]
     Indication: PANCREATIC INSUFFICIENCY
     Dosage: 1 TABLET PER 6G FAT
     Route: 048
     Dates: start: 20050725
  19. MULTIVITAMINS [Concomitant]
     Indication: HYPOVITAMINOSIS
     Dosage: 1 TABLET
     Route: 048
     Dates: start: 20080922, end: 20120514
  20. SODIUM CHLORIDE [Concomitant]
     Indication: HYPONATRAEMIA
     Dosage: 1200 MG, QD
     Route: 048
     Dates: start: 20040818, end: 20120331
  21. SODIUM CHLORIDE [Concomitant]
     Indication: DIARRHOEA
     Dosage: 3 TABLEST
     Route: 048
     Dates: start: 20120408, end: 20120408
  22. SODIUM CHLORIDE [Concomitant]
     Indication: DIZZINESS
  23. INNER HEALTH PLUS [Concomitant]
     Indication: MEDICAL DIET
     Dosage: 1 TABLET
     Route: 048
     Dates: start: 20060403, end: 20110928
  24. INNER HEALTH PLUS [Concomitant]
     Dosage: 1 CAPSULE
     Route: 048
     Dates: start: 20130409
  25. NASONEX [Concomitant]
     Indication: NASAL CONGESTION
     Dosage: 2 SPRAY
     Dates: start: 20100625, end: 20110408
  26. NASONEX [Concomitant]
     Indication: NASAL POLYPS
     Dosage: 2 SPRAY EACH NOSTRIL
     Dates: start: 20110409
  27. AUGMENTIN DUO [Concomitant]
     Indication: COUGH
     Dosage: 500/125
     Route: 048
     Dates: start: 20110821, end: 20110901
  28. AUGMENTIN DUO [Concomitant]
     Dosage: 500/125 MG
     Route: 048
     Dates: start: 20120209, end: 20120229
  29. AUGMENTIN DUO [Concomitant]
     Dosage: 1 TABLET
     Route: 048
     Dates: start: 20120423, end: 20120511
  30. AUGMENTIN DUO [Concomitant]
     Dosage: 1 TABLET
     Route: 048
     Dates: start: 20120824, end: 20120906
  31. BACTRIM [Concomitant]
     Indication: PRODUCTIVE COUGH
     Dosage: HALF TABLET
     Route: 048
     Dates: start: 20110902, end: 20110928
  32. BACTRIM [Concomitant]
     Indication: NASAL POLYPS
     Dosage: HALF TABLET
     Route: 048
     Dates: start: 20111226, end: 20120106
  33. BACTRIM [Concomitant]
     Indication: UPPER RESPIRATORY TRACT INFECTION
     Dosage: HALF TABLET
     Route: 048
     Dates: start: 20120301, end: 20120309
  34. BACTRIM [Concomitant]
     Dosage: HALF TABLET
     Route: 048
     Dates: start: 20120418, end: 20120422
  35. BACTRIM [Concomitant]
     Dosage: HALF TABLET, BID
     Route: 048
     Dates: start: 20120601, end: 20120611
  36. BACTRIM [Concomitant]
     Dosage: HALF TABLET
     Route: 048
     Dates: start: 20120617, end: 20120621
  37. BACTRIM [Concomitant]
     Dosage: HALF TABLET, QD
     Route: 048
     Dates: start: 20120622, end: 20120623
  38. BACTRIM [Concomitant]
     Dosage: I TABLET IN THE PM
     Route: 048
     Dates: start: 20120816, end: 20120823
  39. BACTRIM [Concomitant]
     Dosage: HALF TABLET IN THE AM
     Dates: start: 20120816, end: 20120823
  40. BACTRIM [Concomitant]
     Dosage: I TABLET IN AM
     Route: 048
     Dates: start: 20121013, end: 20121024
  41. BACTRIM [Concomitant]
     Dosage: 1 TABLET IN PM
     Route: 048
     Dates: start: 20121013, end: 20121024
  42. BACTRIM [Concomitant]
     Dosage: 1 TABLET IN AM
     Route: 048
     Dates: start: 20120218, end: 20120224
  43. BACTRIM [Concomitant]
     Dosage: HALF TABLET IN PM
     Route: 048
     Dates: start: 20120218, end: 20120224
  44. PARACETAMOL [Concomitant]
     Indication: UPPER RESPIRATORY TRACT INFECTION
     Dosage: 1000 UNK, PRN
     Route: 048
     Dates: start: 20110808, end: 20110810
  45. PARACETAMOL [Concomitant]
     Indication: PLEURITIC PAIN
     Dosage: 500 MG, EVERY 6 HOURS
     Route: 048
     Dates: start: 20121228, end: 20121228
  46. PARACETAMOL [Concomitant]
     Dosage: 500 MG, UNK
     Route: 048
     Dates: start: 20121229, end: 20121230
  47. PARACETAMOL [Concomitant]
     Dosage: 500 MG, EVERY 6 HOURS
     Route: 048
     Dates: start: 20121231, end: 20130101
  48. PARACETAMOL [Concomitant]
     Dosage: 500 MG, TID
     Route: 048
     Dates: start: 20130102, end: 20130103
  49. PARACETAMOL [Concomitant]
     Dosage: UNK
  50. PANADEINE [Concomitant]
     Indication: UPPER RESPIRATORY TRACT INFECTION
     Dosage: 1 TABLET
     Route: 048
     Dates: start: 20110809, end: 20110810
  51. IBUPROFEN [Concomitant]
     Indication: UPPER RESPIRATORY TRACT INFECTION
     Dosage: 8 UNK, UNK
     Route: 048
     Dates: start: 20110809, end: 20110810
  52. IBUPROFEN [Concomitant]
     Dosage: 200 MG, UNK
     Route: 048
     Dates: start: 20120503, end: 20120504
  53. IBUPROFEN [Concomitant]
     Dosage: 300 MG, TID
     Route: 048
     Dates: start: 20121228, end: 20130103
  54. DIMETHOCAINE [Concomitant]
     Indication: ANAESTHESIA
  55. MULTIVITAMIN [Concomitant]
     Indication: HYPOVITAMINOSIS
  56. VITAMIN K [Concomitant]
     Dosage: 1 CAPSULE, TWICE A WEEK
     Route: 048
     Dates: start: 20120515
  57. FLIXOTIDE [Concomitant]
     Indication: COUGH
  58. CREON 25000 [Concomitant]
     Indication: PANCREATIC INSUFFICIENCY
     Route: 048
  59. OMEPRAZOLE [Concomitant]
     Indication: GASTRITIS
  60. TOBRAMYCIN [Concomitant]
     Indication: PLEURITIC PAIN
     Dosage: 340 MG, UNK
     Route: 042
     Dates: start: 20121229, end: 20121230
  61. TOBRAMYCIN [Concomitant]
     Indication: CHEST X-RAY ABNORMAL
     Dosage: 400 MG, UNK
     Route: 042
     Dates: start: 20121231, end: 20130101
  62. TOBRAMYCIN [Concomitant]
     Indication: ATELECTASIS
     Dosage: 440 MG, QD
     Route: 042
     Dates: start: 20130102, end: 20130108
  63. PROPOFOL [Concomitant]
     Indication: GENERAL ANAESTHESIA
     Dosage: 30 MG, UNK
     Route: 042
     Dates: start: 20121228, end: 20121228
  64. ISOFLURANE [Concomitant]
     Indication: GENERAL ANAESTHESIA
     Dosage: UNK
     Dates: start: 20121228, end: 20121228
  65. NITROUS OXIDE [Concomitant]
     Indication: GENERAL ANAESTHESIA
     Dosage: UNK
     Dates: start: 20121228, end: 20121228
  66. OXYGEN [Concomitant]
     Indication: GENERAL ANAESTHESIA
     Dosage: UNK
     Dates: start: 20121228, end: 20121228
  67. LIGNOCAINE                         /00033401/ [Concomitant]
     Indication: LOCAL ANAESTHESIA
  68. SOFRAMYCIN EYE [Concomitant]
     Indication: CONJUNCTIVITIS
     Dosage: UNK
     Route: 047
     Dates: start: 20120731, end: 20120731
  69. SOFRAMYCIN EYE [Concomitant]
     Dosage: UNK
     Route: 047
     Dates: start: 20120801, end: 20120807
  70. FESS [Concomitant]
     Indication: NASAL POLYPS
     Dosage: 5 SPRAY
     Dates: start: 20130322

REACTIONS (2)
  - Bronchopulmonary aspergillosis allergic [Recovered/Resolved]
  - Chest X-ray abnormal [Not Recovered/Not Resolved]
